FAERS Safety Report 17742621 (Version 1)
Quarter: 2020Q2

REPORT INFORMATION
  Report Type: Spontaneous
  Country: DE (occurrence: DE)
  Receive Date: 20200504
  Receipt Date: 20200504
  Transmission Date: 20200714
  Serious: Yes (Other)
  Sender: FDA-Public Use
  Company Number: DE-MYLANLABS-2020M1043097

PATIENT
  Sex: Female

DRUGS (4)
  1. L-THYROXIN                         /00068002/ [Concomitant]
     Active Substance: LEVOTHYROXINE SODIUM
     Indication: AUTOIMMUNE THYROIDITIS
     Dosage: 75 UG, QD
     Route: 065
     Dates: start: 2012
  2. EVEROLIMUS. [Concomitant]
     Active Substance: EVEROLIMUS
     Indication: BREAST CANCER
     Dosage: 10 MG, QD
     Route: 065
     Dates: start: 20200206, end: 20200213
  3. FULVESTRANT. [Suspect]
     Active Substance: FULVESTRANT
     Indication: BREAST CANCER
     Dosage: 500 MG
     Route: 030
     Dates: start: 20170331
  4. RIBOCICLIB. [Concomitant]
     Active Substance: RIBOCICLIB
     Indication: BREAST CANCER
     Dosage: UNK
     Route: 065
     Dates: start: 201911

REACTIONS (2)
  - Diarrhoea [Unknown]
  - Metastases to lung [Unknown]

NARRATIVE: CASE EVENT DATE: 201911
